FAERS Safety Report 10147087 (Version 2)
Quarter: 2014Q3

REPORT INFORMATION
  Report Type: Spontaneous
  Country: JP (occurrence: JP)
  Receive Date: 20140501
  Receipt Date: 20140703
  Transmission Date: 20150326
  Serious: Yes (Death, Other)
  Sender: FDA-Public Use
  Company Number: JP-SA-2014SA051770

PATIENT
  Age: 62 Year
  Sex: Male
  Weight: 54 kg

DRUGS (26)
  1. ELPLAT [Suspect]
     Active Substance: OXALIPLATIN
     Indication: PANCREATIC CARCINOMA
     Route: 041
     Dates: start: 20131218, end: 20131218
  2. ELPLAT [Suspect]
     Active Substance: OXALIPLATIN
     Indication: PANCREATIC CARCINOMA
     Route: 041
     Dates: start: 20140110, end: 20140110
  3. CAMPTO [Suspect]
     Active Substance: IRINOTECAN
     Indication: PANCREATIC CARCINOMA
     Route: 041
     Dates: start: 20140110, end: 20140110
  4. 5-FU [Suspect]
     Active Substance: FLUOROURACIL
     Indication: PANCREATIC CARCINOMA
     Route: 040
     Dates: start: 20131218, end: 20131218
  5. SERENACE [Concomitant]
     Active Substance: HALOPERIDOL
     Dates: start: 20140111, end: 20140114
  6. VERAPAMIL HCL [Concomitant]
     Active Substance: VERAPAMIL HYDROCHLORIDE
     Dosage: SUPPOSITORY
     Dates: start: 20140122, end: 20140123
  7. 5-FU [Suspect]
     Active Substance: FLUOROURACIL
     Indication: PANCREATIC CARCINOMA
     Route: 040
     Dates: start: 20140110, end: 20140110
  8. CALCIUM LEVOFOLINATE [Concomitant]
     Active Substance: LEVOLEUCOVORIN CALCIUM
     Dates: start: 20131218, end: 20140110
  9. LOPEMIN [Concomitant]
     Active Substance: LOPERAMIDE HYDROCHLORIDE
     Dates: start: 20131218, end: 20140111
  10. EMEND [Concomitant]
     Active Substance: APREPITANT
     Dates: start: 20131218, end: 20140112
  11. CONTOMIN [Concomitant]
     Active Substance: CHLORPROMAZINE
     Dates: start: 20131218, end: 20131230
  12. GASTER [Concomitant]
     Active Substance: FAMOTIDINE
     Dates: start: 20131218, end: 20140126
  13. CAMPTO [Suspect]
     Active Substance: IRINOTECAN
     Indication: PANCREATIC CARCINOMA
     Route: 041
     Dates: start: 20131218, end: 20131218
  14. 5-FU [Suspect]
     Active Substance: FLUOROURACIL
     Indication: PANCREATIC CARCINOMA
     Route: 041
     Dates: start: 20131218, end: 20131218
  15. ALOXI [Concomitant]
     Active Substance: PALONOSETRON HYDROCHLORIDE
     Dates: start: 20131218, end: 20140110
  16. DECADRON [Concomitant]
     Active Substance: DEXAMETHASONE
     Dates: start: 20131218, end: 20140112
  17. ROPION [Concomitant]
     Active Substance: FLURBIPROFEN AXETIL
     Dates: start: 20131221, end: 20140126
  18. HERBAL NOS [Concomitant]
     Active Substance: HERBALS
     Dosage: GRANULE
     Dates: start: 20131221, end: 20140113
  19. RED BLOOD CELLS, CONCENTRATED [Concomitant]
     Active Substance: HUMAN RED BLOOD CELL
     Dates: start: 20140117
  20. NEUTROGIN [Concomitant]
     Active Substance: LENOGRASTIM
     Dates: start: 20140107, end: 20140121
  21. FENTANYL. [Concomitant]
     Active Substance: FENTANYL
     Dates: start: 20131217, end: 20140125
  22. UNASYN [Concomitant]
     Active Substance: AMPICILLIN SODIUM\SULBACTAM SODIUM
     Dates: start: 20140115, end: 20140124
  23. 5-FU [Suspect]
     Active Substance: FLUOROURACIL
     Indication: PANCREATIC CARCINOMA
     Route: 041
     Dates: start: 20140110, end: 20140110
  24. FENTANYL CITRATE. [Concomitant]
     Active Substance: FENTANYL CITRATE
     Dosage: FORM:TAPE (INCLUDING POULTICE
     Dates: start: 20131218, end: 20140124
  25. HUMULIN R [Concomitant]
     Active Substance: INSULIN HUMAN
     Dates: start: 20131228, end: 20140121
  26. NOVAMIN [Concomitant]
     Active Substance: PROCHLORPERAZINE MALEATE
     Dates: start: 20140108, end: 20140109

REACTIONS (6)
  - Gastrointestinal haemorrhage [Fatal]
  - Nausea [Unknown]
  - Diarrhoea [Recovering/Resolving]
  - Duodenal stenosis [Fatal]
  - Pancytopenia [Not Recovered/Not Resolved]
  - Pneumonia [Fatal]

NARRATIVE: CASE EVENT DATE: 201312
